FAERS Safety Report 15299622 (Version 1)
Quarter: 2018Q3

REPORT INFORMATION
  Report Type: Spontaneous
  Country: US (occurrence: US)
  Receive Date: 20180821
  Receipt Date: 20180821
  Transmission Date: 20181010
  Serious: Yes (Hospitalization)
  Sender: FDA-Public Use
  Company Number: US-BEH-2018093933

PATIENT
  Age: 49 Year
  Sex: Female
  Weight: 90.7 kg

DRUGS (1)
  1. HIZENTRA [Suspect]
     Active Substance: HUMAN IMMUNOGLOBULIN G
     Indication: HYPOGAMMAGLOBULINAEMIA
     Dosage: 9 G, QW
     Route: 058
     Dates: start: 20150331

REACTIONS (6)
  - Pneumonia [Unknown]
  - Dyspnoea [Unknown]
  - Weight increased [Unknown]
  - Weight decreased [Unknown]
  - Decreased appetite [Unknown]
  - Urine output decreased [Unknown]

NARRATIVE: CASE EVENT DATE: 201807
